FAERS Safety Report 9454061 (Version 3)
Quarter: 2013Q3

REPORT INFORMATION
  Report Type: Spontaneous
  Country: IT (occurrence: IT)
  Receive Date: 20130812
  Receipt Date: 20130928
  Transmission Date: 20140515
  Serious: Yes (Hospitalization)
  Sender: FDA-Public Use
  Company Number: IT-ROCHE-1260156

PATIENT
  Age: 78 Year
  Sex: Male

DRUGS (9)
  1. RIVOTRIL [Suspect]
     Indication: PRODUCT USED FOR UNKNOWN INDICATION
     Route: 048
     Dates: start: 20130627, end: 20130808
  2. SEROQUEL [Suspect]
     Indication: PRODUCT USED FOR UNKNOWN INDICATION
     Route: 048
     Dates: start: 20130627, end: 20130808
  3. NEBIVOLOL [Concomitant]
  4. SERTRALINE [Concomitant]
  5. NEXIUM [Concomitant]
  6. DINTOINA [Concomitant]
  7. KEPPRA [Concomitant]
  8. CARDIOASPIRIN [Concomitant]
     Route: 048
  9. TAREG [Concomitant]

REACTIONS (2)
  - Confusional state [Recovering/Resolving]
  - Sopor [Recovering/Resolving]
